FAERS Safety Report 6769815-9 (Version None)
Quarter: 2010Q2

REPORT INFORMATION
  Report Type: 
  Country: None (occurrence: None)
  Receive Date: 20100615
  Receipt Date: 20100603
  Transmission Date: 20101027
  Serious: Yes (Other)
  Sender: FDA-Public Use
  Company Number: PHHY2010CN37013

PATIENT
  Age: 75 Year
  Sex: Female

DRUGS (1)
  1. STARLIX [Suspect]
     Indication: DIABETES MELLITUS
     Dosage: 120 MG, TID
     Route: 048
     Dates: start: 20100601

REACTIONS (3)
  - ABDOMINAL PAIN [None]
  - CHOLELITHIASIS [None]
  - DIARRHOEA [None]
